FAERS Safety Report 15374771 (Version 1)
Quarter: 2018Q3

REPORT INFORMATION
  Report Type: Spontaneous
  Country: BE (occurrence: BE)
  Receive Date: 20180912
  Receipt Date: 20180912
  Transmission Date: 20181010
  Serious: Yes (Other)
  Sender: FDA-Public Use
  Company Number: PHHY2018BE090371

PATIENT
  Age: 33 Year
  Sex: Male

DRUGS (8)
  1. PACLITAXEL. [Suspect]
     Active Substance: PACLITAXEL
     Indication: PRIMARY EFFUSION LYMPHOMA
     Dosage: 60 MG, UNK
     Route: 065
  2. BLEOMYCIN [Concomitant]
     Active Substance: BLEOMYCIN SULFATE
     Indication: HIV INFECTION
     Dosage: UNK (MAINTENANCE TREATMENT) (6 COURSES EVERY 2 WEEKS)
     Route: 065
  3. INDINAVIR [Concomitant]
     Active Substance: INDINAVIR
     Indication: HIV INFECTION
     Dosage: UNK (TRIPLE THERAPY)
     Route: 065
  4. ADRIAMYCIN [Concomitant]
     Active Substance: DOXORUBICIN HYDROCHLORIDE
     Indication: HIV INFECTION
     Dosage: UNK, CYCLIC (SIX COURSES EVERY 2 WEEKS)
     Route: 065
  5. LAMIVUDINE. [Concomitant]
     Active Substance: LAMIVUDINE
     Indication: HIV INFECTION
     Dosage: UNK (TRIPLE THERAPY)
     Route: 065
  6. PACLITAXEL. [Suspect]
     Active Substance: PACLITAXEL
     Indication: PLEURAL EFFUSION
     Dosage: 75 MG/M2, UNK (INFUSION)
     Route: 065
  7. VINCRISTINE SULPHATE [Concomitant]
     Active Substance: VINCRISTINE SULFATE
     Indication: HIV INFECTION
     Dosage: UNK, CYCLIC (SIX COURSES EVERY 2 WEEKS)
     Route: 065
  8. STAVUDINE. [Concomitant]
     Active Substance: STAVUDINE
     Indication: HIV INFECTION
     Dosage: UNK (TRIPLE THERAPY)
     Route: 065

REACTIONS (1)
  - Pulmonary hypertension [Recovered/Resolved]
